FAERS Safety Report 6347734-X (Version None)
Quarter: 2009Q3

REPORT INFORMATION
  Report Type: 
  Country: None (occurrence: None)
  Receive Date: 20090910
  Receipt Date: 20090827
  Transmission Date: 20100115
  Serious: Yes (Hospitalization)
  Sender: FDA-Public Use
  Company Number: AU-MYLANLABS-2009S1003800

PATIENT
  Age: 49 Year
  Sex: Female

DRUGS (1)
  1. ENDEP [Suspect]
     Indication: PAIN
     Route: 048
     Dates: start: 20090223, end: 20090225

REACTIONS (5)
  - BREAST CANCER [None]
  - CHEST PAIN [None]
  - PALPITATIONS [None]
  - PULMONARY EMBOLISM [None]
  - TREMOR [None]
